FAERS Safety Report 7275152-9 (Version None)
Quarter: 2011Q1

REPORT INFORMATION
  Report Type: 
  Country: None (occurrence: None)
  Receive Date: 20110204
  Receipt Date: 20110125
  Transmission Date: 20110831
  Serious: Yes (Other)
  Sender: FDA-Public Use
  Company Number: DE-ROCHE-753531

PATIENT
  Sex: Female
  Weight: 50 kg

DRUGS (6)
  1. JODID [Concomitant]
  2. ASPIRIN [Concomitant]
  3. CELLCEPT [Suspect]
     Route: 065
  4. AZATHIOPRIN [Concomitant]
  5. ENALAPRIL MALEATE [Concomitant]
  6. PANTOPRAZOL [Concomitant]

REACTIONS (1)
  - DYSAESTHESIA [None]
